FAERS Safety Report 5300950-8 (Version None)
Quarter: 2007Q2

REPORT INFORMATION
  Report Type: 
  Country: None (occurrence: None)
  Receive Date: 20070418
  Receipt Date: 20070406
  Transmission Date: 20071010
  Serious: Yes (Hospitalization)
  Sender: FDA-Public Use
  Company Number: US-ELI_LILLY_AND_COMPANY-US200704001469

PATIENT
  Age: 46 Year
  Sex: Female

DRUGS (5)
  1. CYMBALTA [Suspect]
     Indication: DEPRESSION
     Dosage: 60 MG, DAILY (1/D)
     Route: 048
  2. COUMADIN [Concomitant]
     Dosage: 6 MG, EACH EVENING
  3. AVALIDE [Concomitant]
     Dosage: UNK, 2/D
  4. TOPROL-XL [Concomitant]
     Dosage: 25 MG, DAILY (1/D)
  5. POTASSIUM CHLORIDE [Concomitant]
     Dosage: 10 MEQ, DAILY (1/D)

REACTIONS (1)
  - GASTRIC BYPASS [None]
